FAERS Safety Report 18206803 (Version 1)
Quarter: 2020Q3

REPORT INFORMATION
  Report Type: Spontaneous
  Country: US (occurrence: US)
  Receive Date: 20200827
  Receipt Date: 20200827
  Transmission Date: 20201103
  Serious: Yes (Hospitalization, Other)
  Sender: FDA-Public Use
  Company Number: None

PATIENT
  Age: 29 Year
  Sex: Male
  Weight: 117.9 kg

DRUGS (2)
  1. VITAMIN C [Concomitant]
     Active Substance: ASCORBIC ACID
  2. HYDROCHLOROTHIAZIDE. [Suspect]
     Active Substance: HYDROCHLOROTHIAZIDE
     Indication: HYPERTENSION
     Dosage: ?          QUANTITY:1 CAPSULE(S);?
     Route: 048
     Dates: start: 20200819, end: 20200821

REACTIONS (7)
  - Heart rate increased [None]
  - Muscular weakness [None]
  - Paraesthesia [None]
  - Weight decreased [None]
  - Dizziness [None]
  - Dyspnoea [None]
  - Nocturia [None]

NARRATIVE: CASE EVENT DATE: 20200821
